FAERS Safety Report 11301966 (Version 1)
Quarter: 2015Q3

REPORT INFORMATION
  Report Type: Spontaneous
  Country: US (occurrence: None)
  Receive Date: 20150723
  Receipt Date: 20150723
  Transmission Date: 20151125
  Serious: No
  Sender: FDA-Public Use
  Company Number: None

PATIENT
  Age: 52 Year
  Sex: Female

DRUGS (3)
  1. FEMRING [Concomitant]
     Active Substance: ESTRADIOL ACETATE
  2. VIEKIRA PAK [Suspect]
     Active Substance: DASABUVIR\OMBITASVIR\PARITAPREVIR\RITONAVIR
     Indication: HEPATITIS
     Dosage: VIEKIRA  AS DIRECTED  PO
     Route: 048
     Dates: start: 20150511
  3. RIBASPHERE [Suspect]
     Active Substance: RIBAVIRIN
     Indication: HEPATITIS
     Dosage: 600MG  QAM  PO
     Route: 048
     Dates: start: 20150511

REACTIONS (11)
  - Insomnia [None]
  - Restless legs syndrome [None]
  - Diarrhoea [None]
  - Back pain [None]
  - Dyspnoea [None]
  - Herpes simplex [None]
  - Nausea [None]
  - Rash pruritic [None]
  - Alopecia [None]
  - Rash papular [None]
  - Chest discomfort [None]
